FAERS Safety Report 9736158 (Version 2)
Quarter: 2013Q4

REPORT INFORMATION
  Report Type: Spontaneous
  Country: CN (occurrence: CN)
  Receive Date: 20131206
  Receipt Date: 20131206
  Transmission Date: 20140711
  Serious: Yes (Hospitalization, Other)
  Sender: FDA-Public Use
  Company Number: CN-ROCHE-1298905

PATIENT
  Age: 16 Year
  Sex: Male
  Weight: 168 kg

DRUGS (1)
  1. PEGASYS [Suspect]
     Indication: HEPATITIS B
     Route: 058
     Dates: start: 20130827, end: 20130929

REACTIONS (10)
  - Jaundice [Not Recovered/Not Resolved]
  - Disease progression [Not Recovered/Not Resolved]
  - Liver injury [Not Recovered/Not Resolved]
  - Hepatic failure [Not Recovered/Not Resolved]
  - Oedema [Unknown]
  - Insomnia [Unknown]
  - Vitiligo [Unknown]
  - Platelet count decreased [Unknown]
  - Transaminases increased [Unknown]
  - White blood cell count decreased [Unknown]
